FAERS Safety Report 11149356 (Version 1)
Quarter: 2015Q2

REPORT INFORMATION
  Report Type: Report from Study
  Country: DE (occurrence: DE)
  Receive Date: 20150529
  Receipt Date: 20150529
  Transmission Date: 20150821
  Serious: Yes (Hospitalization)
  Sender: FDA-Public Use
  Company Number: DE-ABBVIE-15K-062-1395888-00

PATIENT
  Age: 64 Year
  Sex: Female
  Weight: 79.5 kg

DRUGS (1)
  1. HUMIRA [Suspect]
     Active Substance: ADALIMUMAB
     Indication: POLYARTHRITIS
     Route: 058
     Dates: start: 20131010

REACTIONS (7)
  - Gastric ulcer [Unknown]
  - Aortic arteriosclerosis [Unknown]
  - Aortic valve calcification [Unknown]
  - Gastrooesophageal reflux disease [Unknown]
  - Renal artery arteriosclerosis [Unknown]
  - Lymphangiectasia [Unknown]
  - Renal artery stenosis [Unknown]

NARRATIVE: CASE EVENT DATE: 201412
